FAERS Safety Report 5119899-9 (Version None)
Quarter: 2006Q3

REPORT INFORMATION
  Report Type: 
  Country: None (occurrence: None)
  Receive Date: 20060928
  Receipt Date: 20060922
  Transmission Date: 20061208
  Serious: Yes (Death, Hospitalization)
  Sender: FDA-Public Use
  Company Number: A001-320-877

PATIENT
  Age: 74 Year
  Sex: Male
  Weight: 62 kg

DRUGS (7)
  1. DONEPEZIL HCL [Suspect]
     Indication: VASCULAR DEMENTIA
     Dosage: SEE IMAGE
     Route: 048
     Dates: start: 20050825, end: 20051021
  2. DONEPEZIL HCL [Suspect]
     Indication: VASCULAR DEMENTIA
     Dosage: SEE IMAGE
     Route: 048
     Dates: start: 20051022, end: 20060109
  3. DONEPEZIL HCL [Suspect]
     Indication: VASCULAR DEMENTIA
     Dosage: SEE IMAGE
     Route: 048
     Dates: start: 20060211, end: 20060718
  4. DONEPEZIL HCL [Suspect]
     Indication: VASCULAR DEMENTIA
     Dosage: SEE IMAGE
     Route: 048
     Dates: start: 20060728, end: 20060818
  5. DONEPEZIL HCL [Suspect]
     Indication: VASCULAR DEMENTIA
     Dosage: DOUBLEBLIND, 1 IN 1 D, ORAL
     Route: 048
     Dates: start: 20050216, end: 20050801
  6. ASPIRIN [Concomitant]
  7. NEUROBION FORTE (VITAMEDIN INTRAVENOUS) [Concomitant]

REACTIONS (12)
  - BEDRIDDEN [None]
  - CEREBRAL INFARCTION [None]
  - CEREBROVASCULAR ACCIDENT [None]
  - CONDITION AGGRAVATED [None]
  - DIARRHOEA [None]
  - EMBOLISM [None]
  - FALL [None]
  - INFECTION [None]
  - MEMORY IMPAIRMENT [None]
  - NECROTISING FASCIITIS [None]
  - PYREXIA [None]
  - WOUND [None]
